FAERS Safety Report 4795190-5 (Version None)
Quarter: 2005Q4

REPORT INFORMATION
  Report Type: 
  Country: None (occurrence: None)
  Receive Date: 20051006
  Receipt Date: 20051003
  Transmission Date: 20060501
  Serious: Yes (Other)
  Sender: FDA-Public Use
  Company Number: 005778

PATIENT
  Sex: Female

DRUGS (5)
  1. MEDROXYPROGESTERONE ACETATE [Suspect]
     Dosage: ORAL
     Route: 048
     Dates: start: 19970101, end: 20000101
  2. PREMARIN [Suspect]
     Dosage: ORAL
     Route: 048
     Dates: start: 19970101, end: 20000101
  3. PROVERA [Suspect]
     Dosage: ORAL
     Route: 048
     Dates: start: 19970101, end: 20000101
  4. CYCRIN [Suspect]
     Dosage: ORAL
     Route: 048
     Dates: start: 19970101, end: 20000101
  5. ESTRADIOL [Suspect]
     Dosage: ORAL
     Route: 048
     Dates: start: 19970101, end: 20000101

REACTIONS (1)
  - BREAST CANCER FEMALE [None]
